FAERS Safety Report 7250271-1 (Version None)
Quarter: 2011Q1

REPORT INFORMATION
  Report Type: 
  Country: None (occurrence: None)
  Receive Date: 20110128
  Receipt Date: 20110124
  Transmission Date: 20110831
  Serious: Yes (Other)
  Sender: FDA-Public Use
  Company Number: NZ-PFIZER INC-2010161992

PATIENT
  Age: 26 Year
  Sex: Female
  Weight: 70 kg

DRUGS (4)
  1. EFFEXOR XR [Suspect]
     Indication: DEPRESSION
     Dosage: 75 MG, 1X/DAY
     Route: 048
     Dates: start: 20101001, end: 20100101
  2. FERROUS FUMARATE [Concomitant]
     Indication: SERUM FERRITIN DECREASED
     Dosage: 200 MG, 1X/DAY
     Route: 048
     Dates: start: 20100601
  3. SERETIDE [Concomitant]
     Indication: ASTHMA
     Dosage: 100 UG, 2X/DAY
  4. EFFEXOR XR [Suspect]
     Dosage: 150 MG, UNK
     Dates: start: 20100101, end: 20101123

REACTIONS (4)
  - INTENTIONAL SELF-INJURY [None]
  - DRUG INEFFECTIVE [None]
  - DEPRESSION [None]
  - SUICIDAL BEHAVIOUR [None]
